FAERS Safety Report 7043332-3 (Version None)
Quarter: 2010Q4

REPORT INFORMATION
  Report Type: 
  Country: None (occurrence: None)
  Receive Date: 20101013
  Receipt Date: 20100810
  Transmission Date: 20110411
  Serious: No
  Sender: FDA-Public Use
  Company Number: US-ASTRAZENECA-2010SE37538

PATIENT
  Age: 755 Month
  Sex: Male
  Weight: 95.3 kg

DRUGS (6)
  1. SYMBICORT [Suspect]
     Indication: CHRONIC OBSTRUCTIVE PULMONARY DISEASE
     Dosage: 320MCG BID
     Route: 055
     Dates: start: 20100201
  2. SPIRIVA [Concomitant]
     Indication: CHRONIC OBSTRUCTIVE PULMONARY DISEASE
  3. PRAVASTATIN [Concomitant]
  4. ENERGY 2000 [Concomitant]
  5. ASPIRIN [Concomitant]
  6. M.V.I. [Concomitant]

REACTIONS (4)
  - ACNE [None]
  - ALOPECIA [None]
  - TINEA PEDIS [None]
  - VISUAL ACUITY REDUCED [None]
